FAERS Safety Report 19443814 (Version 1)
Quarter: 2021Q2

REPORT INFORMATION
  Report Type: Report from Study
  Country: NL (occurrence: NL)
  Receive Date: 20210621
  Receipt Date: 20210621
  Transmission Date: 20210717
  Serious: Yes (Hospitalization)
  Sender: FDA-Public Use
  Company Number: NVSC2021NL136442

PATIENT
  Sex: Male

DRUGS (1)
  1. ZOMETA [Suspect]
     Active Substance: ZOLEDRONIC ACID
     Indication: PROSTATE CANCER METASTATIC
     Dosage: UNK (1.00 X PER 12 WEEKS) (4MG/100ML)
     Route: 042

REACTIONS (2)
  - Prostatic haemorrhage [Unknown]
  - Inappropriate schedule of product administration [Unknown]
